FAERS Safety Report 9753612 (Version 1)
Quarter: 2013Q4

REPORT INFORMATION
  Report Type: Report from Study
  Country: BE (occurrence: BE)
  Receive Date: 20131213
  Receipt Date: 20131213
  Transmission Date: 20140711
  Serious: Yes (Hospitalization)
  Sender: FDA-Public Use
  Company Number: PHHY2013BE144397

PATIENT
  Sex: Female
  Weight: 90 kg

DRUGS (2)
  1. ONBREZ [Suspect]
     Indication: CHRONIC OBSTRUCTIVE PULMONARY DISEASE
     Dosage: 150 UG, QD
     Dates: start: 20130218, end: 20130930
  2. SALBUTAMOL [Concomitant]
     Indication: CHRONIC OBSTRUCTIVE PULMONARY DISEASE
     Dosage: 64 MG, UNK
     Route: 048

REACTIONS (4)
  - Asthma [Recovering/Resolving]
  - Transient ischaemic attack [Recovering/Resolving]
  - Loss of consciousness [Recovering/Resolving]
  - Chronic obstructive pulmonary disease [Recovering/Resolving]
